FAERS Safety Report 23261796 (Version 1)
Quarter: 2023Q4

REPORT INFORMATION
  Report Type: Spontaneous
  Country: US (occurrence: US)
  Receive Date: 20231205
  Receipt Date: 20231205
  Transmission Date: 20240109
  Serious: No
  Sender: FDA-Public Use
  Company Number: US-ELI_LILLY_AND_COMPANY-US202311016411

PATIENT
  Age: 38 Year
  Sex: Female

DRUGS (2)
  1. MOUNJARO [Suspect]
     Active Substance: TIRZEPATIDE
     Indication: Increased appetite
     Dosage: UNK UNK, UNKNOWN
     Route: 058
  2. MOUNJARO [Suspect]
     Active Substance: TIRZEPATIDE
     Indication: Increased appetite
     Dosage: 5 MG, UNKNOWN
     Route: 058

REACTIONS (6)
  - Back pain [Recovered/Resolved]
  - Myalgia [Recovered/Resolved]
  - Restless legs syndrome [Not Recovered/Not Resolved]
  - Extra dose administered [Unknown]
  - Off label use [Unknown]
  - Injection site bruising [Unknown]

NARRATIVE: CASE EVENT DATE: 20231124
